FAERS Safety Report 9198175 (Version 1)
Quarter: 2013Q1

REPORT INFORMATION
  Report Type: Spontaneous
  Country: US (occurrence: US)
  Receive Date: 20130329
  Receipt Date: 20130329
  Transmission Date: 20140127
  Serious: No
  Sender: FDA-Public Use
  Company Number: US-BIOGENIDEC-2013BI026846

PATIENT
  Age: 67 Year
  Sex: Female

DRUGS (2)
  1. AVONEX [Suspect]
     Indication: MULTIPLE SCLEROSIS
     Route: 030
     Dates: start: 20090713
  2. AVONEX [Suspect]
     Indication: MULTIPLE SCLEROSIS
     Route: 030
     Dates: start: 20090713

REACTIONS (6)
  - Pain in extremity [Unknown]
  - Injury associated with device [Unknown]
  - Pain [Unknown]
  - Varicose vein [Unknown]
  - Lower extremity mass [Unknown]
  - Haemorrhage [Recovered/Resolved]
